FAERS Safety Report 5217679-7 (Version None)
Quarter: 2006Q4

REPORT INFORMATION
  Report Type: 
  Country: None (occurrence: None)
  Receive Date: 20061130
  Receipt Date: 20060922
  Transmission Date: 20070319
  Serious: Yes (Other)
  Sender: FDA-Public Use
  Company Number: US200601005081

PATIENT
  Age: 46 Year
  Sex: Female
  Weight: 81.2 kg

DRUGS (3)
  1. ZYPREXA [Suspect]
     Indication: INSOMNIA
     Dosage: 10 MG, EACH EVENING, ORAL
     Route: 048
     Dates: start: 19960501, end: 20051031
  2. DEPAKOTE [Concomitant]
  3. ZOLOFT [Concomitant]

REACTIONS (2)
  - DIABETES MELLITUS NON-INSULIN-DEPENDENT [None]
  - WEIGHT INCREASED [None]
